FAERS Safety Report 12555959 (Version 1)
Quarter: 2016Q3

REPORT INFORMATION
  Report Type: Spontaneous
  Country: US (occurrence: None)
  Receive Date: 20160713
  Receipt Date: 20160713
  Transmission Date: 20161109
  Serious: Yes (Other)
  Sender: FDA-Public Use
  Company Number: None

PATIENT
  Age: 82 Year
  Sex: Male

DRUGS (10)
  1. POTASSIUM [Concomitant]
     Active Substance: POTASSIUM
  2. CLOPIDOGREL [Concomitant]
     Active Substance: CLOPIDOGREL BISULFATE
  3. ASPIRIN. [Concomitant]
     Active Substance: ASPIRIN
  4. LEVOFLOXACIN. [Concomitant]
     Active Substance: LEVOFLOXACIN
  5. LISINOPRIL. [Suspect]
     Active Substance: LISINOPRIL
  6. DIGOX [Concomitant]
     Active Substance: DIGOXIN
  7. DILTIAZEM. [Concomitant]
     Active Substance: DILTIAZEM
  8. AVASTIN [Suspect]
     Active Substance: BEVACIZUMAB
     Indication: NEOVASCULAR AGE-RELATED MACULAR DEGENERATION
     Dosage: 1.25MG/0.05ML SINGLE INJECTION ONCE INTRAVITREAL INJECTION
     Dates: start: 20160412, end: 20160412
  9. FUROSEMIDE. [Concomitant]
     Active Substance: FUROSEMIDE
  10. LORATADINE. [Concomitant]
     Active Substance: LORATADINE

REACTIONS (6)
  - Ocular hyperaemia [None]
  - Uveitis [None]
  - Eye pain [None]
  - Eye irritation [None]
  - Vision blurred [None]
  - Eye disorder [None]

NARRATIVE: CASE EVENT DATE: 20160412
